FAERS Safety Report 5934346-2 (Version None)
Quarter: 2008Q4

REPORT INFORMATION
  Report Type: 
  Country: None (occurrence: None)
  Receive Date: 20081029
  Receipt Date: 20081021
  Transmission Date: 20090506
  Serious: Yes (Other)
  Sender: FDA-Public Use
  Company Number: PHHY2008IE25359

PATIENT
  Age: 50 Year
  Sex: Male

DRUGS (4)
  1. EXFORGE [Suspect]
     Dosage: 10MG/160 MG
  2. RASILEZ [Suspect]
     Dosage: 150 MG
  3. CENTYL [Concomitant]
  4. NEBILET [Concomitant]

REACTIONS (2)
  - BLOOD CREATININE INCREASED [None]
  - RENAL IMPAIRMENT [None]
